FAERS Safety Report 16902229 (Version 1)
Quarter: 2019Q4

REPORT INFORMATION
  Report Type: Spontaneous
  Country: ES (occurrence: ES)
  Receive Date: 20191010
  Receipt Date: 20191010
  Transmission Date: 20200122
  Serious: Yes (Other)
  Sender: FDA-Public Use
  Company Number: ES-ROCHE-2422643

PATIENT
  Age: 60 Year
  Sex: Female
  Weight: 55 kg

DRUGS (1)
  1. VISMODEGIB. [Suspect]
     Active Substance: VISMODEGIB
     Indication: NEOPLASM
     Dosage: 150 MG; 1 VEZ AL DIA
     Route: 048
     Dates: start: 20190410

REACTIONS (6)
  - Ageusia [Not Recovered/Not Resolved]
  - Alopecia [Not Recovered/Not Resolved]
  - Weight decreased [Not Recovered/Not Resolved]
  - Anosmia [Not Recovered/Not Resolved]
  - Dysgeusia [Not Recovered/Not Resolved]
  - Muscle spasms [Not Recovered/Not Resolved]

NARRATIVE: CASE EVENT DATE: 20190422
